FAERS Safety Report 9060518 (Version 1)
Quarter: 2013Q1

REPORT INFORMATION
  Report Type: Report from Study
  Country: FR (occurrence: FR)
  Receive Date: 20130212
  Receipt Date: 20130212
  Transmission Date: 20140127
  Serious: Yes (Death)
  Sender: FDA-Public Use
  Company Number: FR-ABBOTT-13P-056-1048295-00

PATIENT
  Sex: Male

DRUGS (5)
  1. RITONAVIR [Suspect]
     Indication: HIV INFECTION
     Route: 048
     Dates: start: 20120928
  2. TRUVADA [Concomitant]
     Indication: HIV INFECTION
     Route: 048
     Dates: start: 20120928
  3. DOLUTEGRAVIR [Concomitant]
     Indication: HIV INFECTION
     Dosage: 50MG/M2
     Route: 048
     Dates: start: 20120928
  4. SAQUINAVIR [Concomitant]
     Indication: HIV INFECTION
     Route: 048
     Dates: start: 20120928
  5. ABACAVIR SULPHATE [Concomitant]
     Indication: HIV INFECTION
     Route: 048
     Dates: start: 20120928

REACTIONS (3)
  - Coma [Fatal]
  - Progressive multifocal leukoencephalopathy [Fatal]
  - Immune reconstitution inflammatory syndrome [Fatal]
